FAERS Safety Report 9737030 (Version 3)
Quarter: 2015Q3

REPORT INFORMATION
  Report Type: Spontaneous
  Country: US (occurrence: US)
  Receive Date: 20131206
  Receipt Date: 20150804
  Transmission Date: 20151125
  Serious: No
  Sender: FDA-Public Use
  Company Number: US-GILEAD-2009-0023753

PATIENT
  Age: 65 Year
  Sex: Female
  Weight: 65.77 kg

DRUGS (16)
  1. OMNICEF [Concomitant]
     Active Substance: CEFDINIR
  2. PREDNISONE. [Concomitant]
     Active Substance: PREDNISONE
  3. SYNTHROID [Concomitant]
     Active Substance: LEVOTHYROXINE SODIUM
  4. ACTIGALL [Concomitant]
     Active Substance: URSODIOL
  5. PREVACID [Concomitant]
     Active Substance: LANSOPRAZOLE
  6. MULTIVITAMIN [Concomitant]
     Active Substance: VITAMINS
  7. LETAIRIS [Suspect]
     Active Substance: AMBRISENTAN
     Indication: PULMONARY ARTERIAL HYPERTENSION
     Route: 048
     Dates: start: 20090314
  8. ALDACTONE [Concomitant]
     Active Substance: SPIRONOLACTONE
  9. REVATIO [Concomitant]
     Active Substance: SILDENAFIL CITRATE
  10. SPIRIVA [Concomitant]
     Active Substance: TIOTROPIUM BROMIDE MONOHYDRATE
  11. PILOCARPINE EYE DROPS [Concomitant]
  12. COUMADIN [Concomitant]
     Active Substance: WARFARIN SODIUM
  13. BUMEX [Concomitant]
     Active Substance: BUMETANIDE
  14. ALBUTEROL. [Concomitant]
     Active Substance: ALBUTEROL
  15. PLAQUENIL [Concomitant]
     Active Substance: HYDROXYCHLOROQUINE SULFATE
  16. CALTRATE [Concomitant]
     Active Substance: CALCIUM CARBONATE

REACTIONS (2)
  - Oedema [Unknown]
  - Liver function test abnormal [Unknown]
